FAERS Safety Report 23139137 (Version 1)
Quarter: 2023Q4

REPORT INFORMATION
  Report Type: Spontaneous
  Country: US (occurrence: US)
  Receive Date: 20231102
  Receipt Date: 20231102
  Transmission Date: 20240109
  Serious: Yes (Other)
  Sender: FDA-Public Use
  Company Number: US-AMNEAL PHARMACEUTICALS-2023-AMRX-03812

PATIENT
  Age: 42 Year
  Sex: Female

DRUGS (8)
  1. ACTIVELLA [Suspect]
     Active Substance: ESTRADIOL\NORETHINDRONE ACETATE
     Indication: Uterine leiomyoma
     Dosage: 1.0MG /0.5MG, EVERY 1 DAYS
     Route: 048
     Dates: start: 20191021, end: 20200918
  2. ACTIVELLA [Suspect]
     Active Substance: ESTRADIOL\NORETHINDRONE ACETATE
     Dosage: 1.0MG 10.5MG, EVERY 1 DAYS
     Route: 048
     Dates: start: 20200918, end: 20230623
  3. ELAGOLIX [Suspect]
     Active Substance: ELAGOLIX
     Indication: Uterine leiomyoma
     Dosage: 300 MG PM DOSE, EVERY 1 DAYS
     Route: 048
     Dates: start: 20191021, end: 20200918
  4. ELAGOLIX [Suspect]
     Active Substance: ELAGOLIX
     Dosage: 300 MG PM DOSE, EVERY 1 DAYS
     Route: 048
     Dates: start: 20200918, end: 20230623
  5. COLACE [Concomitant]
     Active Substance: DOCUSATE SODIUM
     Indication: Constipation prophylaxis
     Dosage: 100 MG, AS NECESSARY
     Dates: start: 20190705
  6. FERROUS SULFATE [Concomitant]
     Active Substance: FERROUS SULFATE
     Indication: Iron deficiency anaemia
     Dosage: 325 MG, 3/DAYS
     Route: 065
     Dates: start: 20190705
  7. PANTOPRAZOLE SODIUM [Concomitant]
     Active Substance: PANTOPRAZOLE SODIUM
     Indication: Gastrooesophageal reflux disease
     Dosage: 20 MG, 4/DAYS
     Route: 065
     Dates: start: 20220311
  8. METHYLPREDNISOLONE [Concomitant]
     Active Substance: METHYLPREDNISOLONE
     Indication: Eczema
     Dosage: 4 MG, EVERY 1 DAYS
     Route: 065

REACTIONS (2)
  - Foot fracture [Not Recovered/Not Resolved]
  - Fall [Unknown]

NARRATIVE: CASE EVENT DATE: 20230930
